FAERS Safety Report 7887842-5 (Version None)
Quarter: 2011Q4

REPORT INFORMATION
  Report Type: 
  Country: None (occurrence: None)
  Receive Date: 20111102
  Receipt Date: 20111102
  Transmission Date: 20120403
  Serious: Yes (Hospitalization)
  Sender: FDA-Public Use
  Company Number: None

PATIENT
  Age: 60 Year
  Sex: Female
  Weight: 107.02 kg

DRUGS (6)
  1. PEGASYS [Concomitant]
  2. SPIRONOLACTONE [Suspect]
     Indication: HYPERTENSION
     Dosage: 25 MG QD ORAL
     Route: 048
     Dates: start: 20110401, end: 20111012
  3. HYDROCHLOROTHIAZIDE [Concomitant]
  4. TRAZODONE HCL [Concomitant]
  5. SIMVASTATIN [Concomitant]
  6. LISINOPRIL [Suspect]
     Indication: HYPERTENSION
     Dosage: 40 MG QD ORAL
     Route: 048
     Dates: start: 20110401, end: 20111012

REACTIONS (3)
  - DIARRHOEA [None]
  - HYPERKALAEMIA [None]
  - HYPOVOLAEMIA [None]
